FAERS Safety Report 22380863 (Version 4)
Quarter: 2023Q2

REPORT INFORMATION
  Report Type: Spontaneous
  Country: CZ (occurrence: CZ)
  Receive Date: 20230530
  Receipt Date: 20230626
  Transmission Date: 20230722
  Serious: Yes (Other)
  Sender: FDA-Public Use
  Company Number: CZ-AUROBINDO-AUR-APL-2023-038876

PATIENT
  Age: 36 Year
  Sex: Male

DRUGS (16)
  1. ATORVASTATIN [Suspect]
     Active Substance: ATORVASTATIN
     Indication: Blood creatine phosphokinase
     Dosage: 40 MILLIGRAM
     Route: 065
     Dates: start: 2016, end: 2017
  2. ATORVASTATIN [Suspect]
     Active Substance: ATORVASTATIN
     Indication: Type IIa hyperlipidaemia
  3. EZETIMIBE [Suspect]
     Active Substance: EZETIMIBE
     Indication: Type IIa hyperlipidaemia
     Dosage: 10 MILLIGRAM
     Route: 065
     Dates: start: 2017, end: 2019
  4. FENOFIBRATE [Suspect]
     Active Substance: FENOFIBRATE
     Indication: Type IIa hyperlipidaemia
     Dosage: UNK
     Route: 065
     Dates: start: 2019, end: 2019
  5. ROSUVASTATIN [Suspect]
     Active Substance: ROSUVASTATIN
     Indication: Type IIa hyperlipidaemia
     Dosage: 40 MILLIGRAM
     Route: 065
     Dates: start: 2019, end: 2019
  6. ROSUVASTATIN [Suspect]
     Active Substance: ROSUVASTATIN
     Indication: Type IIa hyperlipidaemia
     Dosage: 20 MILLIGRAM
     Route: 065
     Dates: start: 20200102, end: 20220727
  7. ROSUVASTATIN [Suspect]
     Active Substance: ROSUVASTATIN
     Indication: Hypercholesterolaemia
     Dosage: 20 MILLIGRAM
     Route: 065
     Dates: start: 2015, end: 2016
  8. ROSUVASTATIN [Suspect]
     Active Substance: ROSUVASTATIN
     Dosage: 20 MILLIGRAM
     Route: 065
     Dates: start: 2017, end: 2019
  9. ROSUVASTATIN [Suspect]
     Active Substance: ROSUVASTATIN
     Dosage: 10 MILLIGRAM
     Route: 065
     Dates: start: 2017, end: 2019
  10. ROSUVASTATIN [Suspect]
     Active Substance: ROSUVASTATIN
     Dosage: 20 MILLIGRAM
     Route: 065
     Dates: start: 2019, end: 2019
  11. ALIROCUMAB [Suspect]
     Active Substance: ALIROCUMAB
     Indication: Blood creatine phosphokinase
     Dosage: 75 MILLIGRAM
     Route: 065
     Dates: start: 20200102, end: 20200914
  12. ALIROCUMAB [Suspect]
     Active Substance: ALIROCUMAB
     Indication: Type IIa hyperlipidaemia
     Dosage: 150 MILLIGRAM
     Route: 065
     Dates: start: 20200914
  13. ATORVASTATIN [Concomitant]
     Active Substance: ATORVASTATIN
     Indication: Blood creatine phosphokinase
     Dosage: 40 MILLIGRAM
     Route: 065
     Dates: start: 2016, end: 2017
  14. ATORVASTATIN [Concomitant]
     Active Substance: ATORVASTATIN
     Indication: Type IIa hyperlipidaemia
  15. ALIROCUMAB [Concomitant]
     Active Substance: ALIROCUMAB
     Indication: Blood creatine phosphokinase
     Dosage: 150 MILLIGRAM
     Route: 065
     Dates: start: 20200914
  16. ALIROCUMAB [Concomitant]
     Active Substance: ALIROCUMAB
     Indication: Type IIa hyperlipidaemia
     Dosage: 75 MILLIGRAM
     Route: 065
     Dates: start: 20200102, end: 20200914

REACTIONS (6)
  - Blood creatine phosphokinase increased [Recovering/Resolving]
  - Arthralgia [Unknown]
  - Gastrointestinal disorder [Unknown]
  - Myalgia [Unknown]
  - Laboratory test abnormal [Unknown]
  - Drug intolerance [Unknown]

NARRATIVE: CASE EVENT DATE: 20160603
